FAERS Safety Report 13966037 (Version 2)
Quarter: 2017Q3

REPORT INFORMATION
  Report Type: Spontaneous
  Country: JP (occurrence: JP)
  Receive Date: 20170913
  Receipt Date: 20170920
  Transmission Date: 20171128
  Serious: No
  Sender: FDA-Public Use
  Company Number: JP-PFIZER INC-2017396084

PATIENT
  Age: 77 Year
  Sex: Male

DRUGS (2)
  1. MEROPENEM. [Suspect]
     Active Substance: MEROPENEM
     Indication: PNEUMONIA
     Dosage: 3000 MG, DAILY
     Route: 042
  2. LEVOFLOXACIN. [Concomitant]
     Active Substance: LEVOFLOXACIN
     Indication: PNEUMONIA
     Dosage: UNK

REACTIONS (1)
  - Drug ineffective [Recovering/Resolving]
